FAERS Safety Report 25478500 (Version 1)
Quarter: 2025Q2

REPORT INFORMATION
  Report Type: Spontaneous
  Country: JP (occurrence: None)
  Receive Date: 20250625
  Receipt Date: 20250625
  Transmission Date: 20250717
  Serious: Yes (Hospitalization)
  Sender: INCYTE
  Company Number: JP-002147023-NVSJ2025JP006557

PATIENT
  Age: 71 Year

DRUGS (1)
  1. RUXOLITINIB [Suspect]
     Active Substance: RUXOLITINIB
     Indication: Polycythaemia vera

REACTIONS (2)
  - Pulmonary tuberculosis [Unknown]
  - False negative investigation result [Unknown]
